FAERS Safety Report 10268279 (Version 1)
Quarter: 2014Q2

REPORT INFORMATION
  Report Type: Spontaneous
  Country: GB (occurrence: GB)
  Receive Date: 20140630
  Receipt Date: 20140630
  Transmission Date: 20141212
  Serious: Yes (Death)
  Sender: FDA-Public Use
  Company Number: GB-WATSON-2014-13737

PATIENT
  Age: 62 Year
  Sex: Female

DRUGS (3)
  1. PREDNISOLONE [Suspect]
     Indication: IMMUNOSUPPRESSION
     Dosage: UNK, 5 MG TABLET (28 TABLETS)
     Route: 048
  2. NEORAL [Suspect]
     Indication: IMMUNOSUPPRESSION
     Dosage: UNK, 25 MG CAPSULE (30 CAPSULES)
     Route: 048
  3. NEORAL [Suspect]
     Dosage: UNK, 50 MG CAPSULE(30 CAPSULES)
     Route: 048

REACTIONS (1)
  - Death [Fatal]
